FAERS Safety Report 7357253-X (Version None)
Quarter: 2011Q1

REPORT INFORMATION
  Report Type: 
  Country: None (occurrence: None)
  Receive Date: 20110317
  Receipt Date: 20110313
  Transmission Date: 20110831
  Serious: No
  Sender: FDA-Public Use
  Company Number: US-PFIZER INC-2011054989

PATIENT
  Sex: Female

DRUGS (1)
  1. CHILDREN'S ADVIL [Suspect]
     Indication: PYREXIA
     Dosage: 1 TEASPOONFUL , 4X/DAY
     Route: 048
     Dates: start: 20110311

REACTIONS (1)
  - ERYTHEMA [None]
